FAERS Safety Report 10022669 (Version 1)
Quarter: 2014Q1

REPORT INFORMATION
  Report Type: Spontaneous
  Country: CA (occurrence: CA)
  Receive Date: 20140319
  Receipt Date: 20140319
  Transmission Date: 20141002
  Serious: Yes (Other)
  Sender: FDA-Public Use
  Company Number: CA-PFIZER INC-2014076512

PATIENT
  Sex: Male

DRUGS (1)
  1. CELEBREX [Suspect]
     Dosage: UNK

REACTIONS (1)
  - Diabetes mellitus [Not Recovered/Not Resolved]
